FAERS Safety Report 6549619-2 (Version None)
Quarter: 2010Q1

REPORT INFORMATION
  Report Type: 
  Country: None (occurrence: None)
  Receive Date: 20100125
  Receipt Date: 20100119
  Transmission Date: 20100710
  Serious: Yes (Death, Hospitalization)
  Sender: FDA-Public Use
  Company Number: JP-ROCHE-676624

PATIENT
  Sex: Female
  Weight: 55 kg

DRUGS (6)
  1. TRASTUZUMAB [Suspect]
     Indication: BREAST CANCER METASTATIC
     Dosage: FORM: VIAL, LAST DOSE PRIRO TO SAE: 18 DEC 2009
     Route: 042
     Dates: start: 20091218
  2. PLACEBO [Suspect]
     Indication: BREAST CANCER METASTATIC
     Dosage: FORM: VIAL, LAST DOSE PRIOR TO SAE: 17 DEC 2009
     Route: 042
     Dates: start: 20091217
  3. DOCETAXEL [Suspect]
     Indication: BREAST CANCER METASTATIC
     Dosage: FORM: VIAL, LAST DOSE PRIRO TO SAE: 18 DEC 2009
     Route: 042
     Dates: start: 20091218
  4. AMBROXOL HYDROCHLORIDE [Concomitant]
     Dates: start: 20091122, end: 20091225
  5. TULOBUTEROL [Concomitant]
     Dates: start: 20091202, end: 20091225
  6. BROMHEXINE [Concomitant]
     Route: 048
     Dates: start: 20091225, end: 20091225

REACTIONS (2)
  - FEBRILE NEUTROPENIA [None]
  - PNEUMONIA [None]
